FAERS Safety Report 6498272-5 (Version None)
Quarter: 2009Q4

REPORT INFORMATION
  Report Type: 
  Country: None (occurrence: None)
  Receive Date: 20091215
  Receipt Date: 20091210
  Transmission Date: 20100525
  Serious: Yes (Other)
  Sender: FDA-Public Use
  Company Number: B0614857A

PATIENT
  Sex: Female

DRUGS (3)
  1. REQUIP [Suspect]
     Indication: DRUG USE FOR UNKNOWN INDICATION
     Dosage: 1MG THREE TIMES PER DAY
     Route: 048
     Dates: end: 20091201
  2. UNKNOWN DRUG [Concomitant]
     Route: 065
  3. COMTAN [Concomitant]
     Route: 048

REACTIONS (1)
  - SUDDEN ONSET OF SLEEP [None]
